FAERS Safety Report 12503504 (Version 1)
Quarter: 2016Q2

REPORT INFORMATION
  Report Type: Spontaneous
  Country: US (occurrence: None)
  Receive Date: 20160627
  Receipt Date: 20160627
  Transmission Date: 20160815
  Serious: No
  Sender: FDA-Public Use
  Company Number: None

PATIENT
  Age: 89 Year
  Sex: Male

DRUGS (4)
  1. VITAMIN B12 [Concomitant]
     Active Substance: CYANOCOBALAMIN
  2. CEPHALEXIN, 500 MG [Suspect]
     Active Substance: CEPHALEXIN
     Indication: SURGERY
     Dosage: 10 TABLETS EVERY 12 HOURS
     Route: 048
  3. ENERGY DRINKS [Concomitant]
  4. SLEEPING PILL [Concomitant]

REACTIONS (4)
  - Diarrhoea [None]
  - Fall [None]
  - Dysstasia [None]
  - Dizziness [None]

NARRATIVE: CASE EVENT DATE: 20160624
